FAERS Safety Report 14680016 (Version 1)
Quarter: 2018Q1

REPORT INFORMATION
  Report Type: Spontaneous
  Country: US (occurrence: US)
  Receive Date: 20180326
  Receipt Date: 20180326
  Transmission Date: 20180509
  Serious: Yes (Life-Threatening)
  Sender: FDA-Public Use
  Company Number: US-STANDARD HOMEOPATHIC COMPANY-2044517

PATIENT
  Age: 83 Year
  Sex: Male

DRUGS (4)
  1. HYLANDS RESTFUL LEGS [Suspect]
     Active Substance: HOMEOPATHICS
     Indication: PARAESTHESIA
     Route: 048
     Dates: start: 201802, end: 20180310
  2. HYLANDS RESTFUL LEGS [Suspect]
     Active Substance: HOMEOPATHICS
     Indication: PRURITUS
     Route: 048
     Dates: start: 201802, end: 20180310
  3. HYLANDS RESTFUL LEGS [Suspect]
     Active Substance: HOMEOPATHICS
     Indication: FORMICATION
     Route: 048
     Dates: start: 201802, end: 20180310
  4. HYLANDS RESTFUL LEGS [Suspect]
     Active Substance: HOMEOPATHICS
     Indication: RESTLESS LEGS SYNDROME
     Route: 048
     Dates: start: 201802, end: 20180310

REACTIONS (2)
  - Muscular weakness [None]
  - Blood glucose decreased [None]

NARRATIVE: CASE EVENT DATE: 20180310
